FAERS Safety Report 4759678-5 (Version None)
Quarter: 2005Q3

REPORT INFORMATION
  Report Type: 
  Country: None (occurrence: None)
  Receive Date: 20050826
  Receipt Date: 20050525
  Transmission Date: 20060218
  Serious: No
  Sender: FDA-Public Use
  Company Number: 214802

PATIENT
  Age: 65 Year
  Sex: Male
  Weight: 90 kg

DRUGS (2)
  1. RAPTIVA [Suspect]
     Indication: PSORIASIS
     Dosage: 90 MG, 1/WEEK, SUBCUTANEOUS
     Route: 058
  2. ZANTAC [Concomitant]

REACTIONS (1)
  - ARTHRALGIA [None]
